FAERS Safety Report 5910150-6 (Version None)
Quarter: 2008Q4

REPORT INFORMATION
  Report Type: 
  Country: None (occurrence: None)
  Receive Date: 20081007
  Receipt Date: 20081003
  Transmission Date: 20090506
  Serious: Yes (Death, Other)
  Sender: FDA-Public Use
  Company Number: JP-BRISTOL-MYERS SQUIBB COMPANY-14327738

PATIENT
  Age: 79 Year
  Sex: Male

DRUGS (2)
  1. VEPESID [Suspect]
     Indication: SMALL CELL LUNG CANCER STAGE UNSPECIFIED
     Dosage: INITIATED ON 01AUG08: 50 MG/M2 THRICE MONTHLY.
     Route: 041
     Dates: start: 20080806, end: 20080810
  2. CARBOMERCK [Suspect]
     Indication: SMALL CELL LUNG CANCER STAGE UNSPECIFIED
     Dosage: 1 DOSAGE FORM = AUC 4.5
     Route: 041
     Dates: start: 20080806, end: 20080806

REACTIONS (5)
  - BLOOD PRESSURE DECREASED [None]
  - BONE MARROW FAILURE [None]
  - DISSEMINATED INTRAVASCULAR COAGULATION [None]
  - INFECTION [None]
  - MULTI-ORGAN FAILURE [None]
